FAERS Safety Report 5602218-9 (Version None)
Quarter: 2008Q1

REPORT INFORMATION
  Report Type: 
  Country: None (occurrence: None)
  Receive Date: 20080125
  Receipt Date: 20080115
  Transmission Date: 20080703
  Serious: Yes (Other)
  Sender: FDA-Public Use
  Company Number: US-ASTRAZENECA-2006UW27724

PATIENT
  Age: 40 Year
  Sex: Female
  Weight: 65 kg

DRUGS (4)
  1. SEROQUEL [Suspect]
     Indication: DEPRESSION
     Dosage: 25-300 MG
     Route: 048
     Dates: start: 19990101, end: 20070902
  2. SEROQUEL [Suspect]
     Indication: SLEEP DISORDER
     Dosage: 25-300 MG
     Route: 048
     Dates: start: 19990101, end: 20070902
  3. SEROQUEL [Suspect]
     Indication: ANXIETY
     Dosage: 25-300 MG
     Route: 048
     Dates: start: 19990101, end: 20070902
  4. SERZONE [Concomitant]
     Dates: start: 19990101

REACTIONS (2)
  - DIABETES MELLITUS [None]
  - NEUROPATHY PERIPHERAL [None]
